FAERS Safety Report 7312946-5 (Version None)
Quarter: 2011Q1

REPORT INFORMATION
  Report Type: 
  Country: None (occurrence: None)
  Receive Date: 20110224
  Receipt Date: 20110215
  Transmission Date: 20110831
  Serious: Yes (Hospitalization)
  Sender: FDA-Public Use
  Company Number: NL-GENENTECH-313776

PATIENT
  Sex: Female
  Weight: 105 kg

DRUGS (6)
  1. METHOTREXATE [Suspect]
     Indication: CENTRAL NERVOUS SYSTEM LYMPHOMA
     Dosage: 6750 MG, UNK
     Route: 042
     Dates: start: 20100902
  2. PREDNISOLONE [Suspect]
     Indication: CENTRAL NERVOUS SYSTEM LYMPHOMA
     Dosage: 135 MG, UNK
     Route: 048
     Dates: start: 20100902
  3. METHOTREXATE [Suspect]
     Dosage: 15 MG, UNK
     Route: 037
     Dates: start: 20100909
  4. CARMUSTINE [Suspect]
     Indication: CENTRAL NERVOUS SYSTEM LYMPHOMA
     Dosage: 220 MG, UNK
     Route: 042
     Dates: start: 20100905
  5. RITUXIMAB [Suspect]
     Indication: CENTRAL NERVOUS SYSTEM LYMPHOMA
     Dosage: 840 MG, UNK
     Route: 042
     Dates: start: 20100901
  6. TENIPOSIDE [Suspect]
     Indication: CENTRAL NERVOUS SYSTEM LYMPHOMA
     Dosage: 220 MG, UNK
     Route: 042
     Dates: start: 20100903

REACTIONS (1)
  - NERVE ROOT LESION [None]
